FAERS Safety Report 12526652 (Version 2)
Quarter: 2018Q1

REPORT INFORMATION
  Report Type: Spontaneous
  Country: GR (occurrence: GR)
  Receive Date: 20160705
  Receipt Date: 20180125
  Transmission Date: 20180508
  Serious: Yes (Hospitalization, Other)
  Sender: FDA-Public Use
  Company Number: GR-LUPIN PHARMACEUTICALS INC.-2016-02939

PATIENT
  Age: 72 Year
  Sex: Male

DRUGS (2)
  1. AMLODIPINE [Suspect]
     Active Substance: AMLODIPINE BESYLATE
     Indication: HYPERTENSION
     Dosage: 10 MG, UNK
     Route: 065
  2. VALSARTAN. [Concomitant]
     Active Substance: VALSARTAN
     Indication: HYPERTENSION
     Dosage: 320 MG, UNK
     Route: 065

REACTIONS (4)
  - Hypotension [Recovered/Resolved]
  - Shock [Recovered/Resolved]
  - Accidental overdose [Unknown]
  - Cardiac disorder [Recovered/Resolved]
